FAERS Safety Report 7515575-3 (Version None)
Quarter: 2011Q2

REPORT INFORMATION
  Report Type: 
  Country: None (occurrence: None)
  Receive Date: 20110601
  Receipt Date: 20100712
  Transmission Date: 20111010
  Serious: Yes (Hospitalization, Other)
  Sender: FDA-Public Use
  Company Number: US-PFIZER INC-2009291855

PATIENT
  Sex: Female

DRUGS (2)
  1. SYNTHROID [Concomitant]
     Indication: HYPOTHYROIDISM
     Dosage: UNK
     Dates: start: 19990101
  2. CHANTIX [Suspect]
     Indication: SMOKING CESSATION THERAPY
     Dosage: UNK
     Route: 048
     Dates: start: 20070601, end: 20070801

REACTIONS (8)
  - DEPRESSION [None]
  - CRYING [None]
  - SUICIDE ATTEMPT [None]
  - MOOD SWINGS [None]
  - ABNORMAL BEHAVIOUR [None]
  - ANXIETY [None]
  - AGGRESSION [None]
  - PANIC ATTACK [None]
